FAERS Safety Report 4757063-3 (Version None)
Quarter: 2005Q3

REPORT INFORMATION
  Report Type: 
  Country: None (occurrence: None)
  Receive Date: 20050829
  Receipt Date: 20050829
  Transmission Date: 20060218
  Serious: Yes (Other)
  Sender: FDA-Public Use
  Company Number: None

PATIENT
  Age: 44 Year
  Sex: Female
  Weight: 77.1115 kg

DRUGS (2)
  1. RELACORE [Suspect]
     Indication: AFFECTIVE DISORDER
     Dosage: TWO CAPSULES THREE TIMES DAILY PO
     Route: 048
     Dates: start: 20050803, end: 20050815
  2. RELACORE [Suspect]
     Indication: WEIGHT DECREASED
     Dosage: TWO CAPSULES THREE TIMES DAILY PO
     Route: 048
     Dates: start: 20050803, end: 20050815

REACTIONS (3)
  - ANXIETY [None]
  - DEPRESSION [None]
  - HORMONE LEVEL ABNORMAL [None]
